FAERS Safety Report 22816127 (Version 2)
Quarter: 2023Q4

REPORT INFORMATION
  Report Type: Spontaneous
  Country: AT (occurrence: AT)
  Receive Date: 20230811
  Receipt Date: 20231013
  Transmission Date: 20240110
  Serious: Yes (Hospitalization)
  Sender: FDA-Public Use
  Company Number: AT-JNJFOC-20220758922

PATIENT
  Age: 77 Year
  Sex: Male
  Weight: 64 kg

DRUGS (9)
  1. TECLISTAMAB [Suspect]
     Active Substance: TECLISTAMAB
     Indication: Plasma cell myeloma
     Route: 042
     Dates: start: 20220708
  2. TECLISTAMAB [Suspect]
     Active Substance: TECLISTAMAB
     Route: 042
     Dates: start: 20220711
  3. TECLISTAMAB [Suspect]
     Active Substance: TECLISTAMAB
     Route: 042
     Dates: start: 20220714
  4. TECLISTAMAB [Suspect]
     Active Substance: TECLISTAMAB
     Route: 042
     Dates: start: 20220721
  5. ZOMETA [Concomitant]
     Active Substance: ZOLEDRONIC ACID
     Indication: Osteolysis
  6. VALACYCLOVIR HYDROCHLORIDE [Concomitant]
     Active Substance: VALACYCLOVIR HYDROCHLORIDE
     Indication: Prophylaxis
  7. CALCIUM CARBONATE\VITAMIN D [Concomitant]
     Active Substance: CALCIUM CARBONATE\VITAMIN D
     Indication: Prophylaxis
  8. BISOPROLOL FUMARATE [Concomitant]
     Active Substance: BISOPROLOL FUMARATE
     Indication: Cardiovascular disorder
  9. ATORVASTATIN CALCIUM\EZETIMIBE [Concomitant]
     Active Substance: ATORVASTATIN CALCIUM\EZETIMIBE
     Indication: Prophylaxis

REACTIONS (2)
  - Soft tissue neoplasm [Recovered/Resolved]
  - Spinal cord compression [Recovered/Resolved]

NARRATIVE: CASE EVENT DATE: 20220725
